FAERS Safety Report 9284221 (Version 1)
Quarter: 2013Q2

REPORT INFORMATION
  Report Type: Spontaneous
  Country: FR (occurrence: FR)
  Receive Date: 20130510
  Receipt Date: 20130510
  Transmission Date: 20140414
  Serious: Yes (Hospitalization)
  Sender: FDA-Public Use
  Company Number: FR-MERCK-1305FRA001536

PATIENT
  Age: 27 Year
  Sex: Female

DRUGS (8)
  1. CANCIDAS [Suspect]
     Dosage: 50 MG, UNKNOWN
     Route: 042
     Dates: start: 20130203, end: 20130306
  2. CLAVENTIN [Suspect]
     Dosage: UNK
     Route: 042
     Dates: start: 20130203, end: 20130228
  3. GENTAMICIN [Suspect]
     Dosage: UNK
     Route: 042
     Dates: start: 20130304, end: 20130306
  4. AMOXICILLIN [Suspect]
     Dosage: UNK
     Route: 042
     Dates: start: 20130304, end: 20130306
  5. TRIFLUCAN [Concomitant]
     Dosage: UNK
     Route: 048
  6. TAZOCILLINE [Concomitant]
     Dosage: UNK
     Route: 042
  7. VANCOMYCIN [Concomitant]
     Dosage: UNK
     Route: 042
  8. LOVENOX [Concomitant]
     Route: 058

REACTIONS (1)
  - Hepatocellular injury [Recovered/Resolved]
